FAERS Safety Report 17992375 (Version 1)
Quarter: 2020Q3

REPORT INFORMATION
  Report Type: Spontaneous
  Country: US (occurrence: US)
  Receive Date: 20200707
  Receipt Date: 20200707
  Transmission Date: 20201103
  Serious: Yes (Other)
  Sender: FDA-Public Use
  Company Number: US-009507513-2007USA000863

PATIENT
  Sex: Male

DRUGS (1)
  1. TICE BCG [Suspect]
     Active Substance: BACILLUS CALMETTE-GUERIN SUBSTRAIN TICE LIVE ANTIGEN
     Indication: BLADDER CANCER
     Dosage: UNK
     Route: 043
     Dates: start: 2019, end: 20191115

REACTIONS (6)
  - Treatment failure [Unknown]
  - Adverse event [Unknown]
  - Decreased appetite [Unknown]
  - Fatigue [Unknown]
  - Bladder cancer recurrent [Unknown]
  - Chills [Unknown]

NARRATIVE: CASE EVENT DATE: 2019
